FAERS Safety Report 14766329 (Version 1)
Quarter: 2018Q2

REPORT INFORMATION
  Report Type: Spontaneous
  Country: FR (occurrence: FR)
  Receive Date: 20180416
  Receipt Date: 20180416
  Transmission Date: 20180711
  Serious: Yes (Life-Threatening)
  Sender: FDA-Public Use
  Company Number: PHHY2018FR065177

PATIENT
  Age: 77 Year
  Sex: Male

DRUGS (2)
  1. RIFAMPICIN [Suspect]
     Active Substance: RIFAMPIN
     Indication: STAPHYLOCOCCAL INFECTION
     Dosage: 600 MG, BID
     Route: 065
  2. CEFAZOLIN [Suspect]
     Active Substance: CEFAZOLIN
     Indication: STAPHYLOCOCCAL INFECTION
     Dosage: 6 G, QD
     Route: 042

REACTIONS (3)
  - Pericardial haemorrhage [Unknown]
  - Hypoprothrombinaemia [Unknown]
  - Hypovitaminosis [Unknown]
